FAERS Safety Report 8455578-8 (Version None)
Quarter: 2012Q2

REPORT INFORMATION
  Report Type: 
  Country: None (occurrence: None)
  Receive Date: 20120621
  Receipt Date: 20120611
  Transmission Date: 20120825
  Serious: Yes (Hospitalization, Other)
  Sender: FDA-Public Use
  Company Number: US-VERTEX PHARMACEUTICALS INC.-AE-2012-008637

PATIENT
  Sex: Female

DRUGS (3)
  1. RIBAVIRIN [Concomitant]
     Indication: HEPATITIS C
     Dates: start: 20120407
  2. PEGASYS [Concomitant]
     Indication: HEPATITIS C
     Dates: start: 20120408
  3. INCIVEK [Suspect]
     Indication: HEPATITIS C
     Dates: start: 20120407

REACTIONS (5)
  - BLOOD POTASSIUM ABNORMAL [None]
  - MALAISE [None]
  - FATIGUE [None]
  - DEHYDRATION [None]
  - VOMITING [None]
